FAERS Safety Report 9843749 (Version 1)
Quarter: 2014Q1

REPORT INFORMATION
  Report Type: Spontaneous
  Country: US (occurrence: US)
  Receive Date: 20140126
  Receipt Date: 20140126
  Transmission Date: 20141002
  Serious: No
  Sender: FDA-Public Use
  Company Number: US-009507513-1401USA010707

PATIENT
  Sex: Female

DRUGS (3)
  1. MIRALAX [Suspect]
     Indication: COLONOSCOPY
     Dosage: UNK UNK, BID
     Route: 048
     Dates: start: 20140113
  2. MIRALAX [Suspect]
     Indication: BOWEL PREPARATION
  3. DULCOLAX [Suspect]
     Indication: PRODUCT USED FOR UNKNOWN INDICATION
     Dosage: 4 DF, ONCE
     Dates: start: 20140113

REACTIONS (6)
  - Dizziness [Unknown]
  - Nausea [Unknown]
  - Overdose [Unknown]
  - Inappropriate schedule of drug administration [Unknown]
  - Off label use [Unknown]
  - Product taste abnormal [Unknown]
